FAERS Safety Report 15067394 (Version 1)
Quarter: 2018Q2

REPORT INFORMATION
  Report Type: Report from Study
  Country: ES (occurrence: ES)
  Receive Date: 20180626
  Receipt Date: 20180626
  Transmission Date: 20180711
  Serious: Yes (Other)
  Sender: FDA-Public Use
  Company Number: PHHO2018ES007576

PATIENT
  Age: 6 Year
  Sex: Female
  Weight: 26.1 kg

DRUGS (1)
  1. AIN457 [Suspect]
     Active Substance: SECUKINUMAB
     Indication: PSORIASIS
     Dosage: UNK
     Route: 058
     Dates: start: 20180606, end: 20180613

REACTIONS (1)
  - Toxic shock syndrome [Not Recovered/Not Resolved]

NARRATIVE: CASE EVENT DATE: 20180621
